FAERS Safety Report 7080988-3 (Version None)
Quarter: 2010Q4

REPORT INFORMATION
  Report Type: 
  Country: None (occurrence: None)
  Receive Date: 20101103
  Receipt Date: 20101021
  Transmission Date: 20110411
  Serious: Yes (Hospitalization, Other)
  Sender: FDA-Public Use
  Company Number: FR-ACTELION-A-CH2010-40265

PATIENT
  Age: 45 Year
  Sex: Female

DRUGS (2)
  1. TRACLEER [Suspect]
     Indication: PULMONARY ARTERIAL HYPERTENSION
     Dosage: 125 MG, BID
     Route: 048
  2. TRACLEER [Suspect]
     Dosage: 62.5 MG, BID
     Route: 048
     Dates: start: 20100401

REACTIONS (7)
  - ADENOMA BENIGN [None]
  - ADRENAL NEOPLASM [None]
  - ARTHRALGIA [None]
  - HAEMANGIOMA [None]
  - MASS [None]
  - PHAEOCHROMOCYTOMA [None]
  - RHEUMATOID ARTHRITIS [None]
